FAERS Safety Report 9109116 (Version 4)
Quarter: 2013Q1

REPORT INFORMATION
  Report Type: Report from Study
  Country: US (occurrence: US)
  Receive Date: 20130222
  Receipt Date: 20130328
  Transmission Date: 20140127
  Serious: Yes (Other)
  Sender: FDA-Public Use
  Company Number: US-ACTELION-A-NJ2012-71756

PATIENT
  Age: 81 Year
  Sex: Female

DRUGS (3)
  1. VENTAVIS [Suspect]
     Indication: PULMONARY ARTERIAL HYPERTENSION
     Dosage: 5 UNK, 5-6XDAILY
     Route: 055
     Dates: start: 200711
  2. VENTAVIS [Suspect]
     Dosage: 5 UNK, 3-4XDAILY
     Route: 055
  3. PLAVIX [Concomitant]

REACTIONS (10)
  - Cardiac disorder [Recovering/Resolving]
  - Lung disorder [Recovering/Resolving]
  - Joint injury [Recovering/Resolving]
  - Pain [Unknown]
  - Decreased appetite [Unknown]
  - Fall [Recovering/Resolving]
  - Drug dose omission [Unknown]
  - Arthralgia [Unknown]
  - Mobility decreased [Unknown]
  - Malaise [Recovering/Resolving]
